FAERS Safety Report 7715023-4 (Version None)
Quarter: 2011Q3

REPORT INFORMATION
  Report Type: 
  Country: None (occurrence: None)
  Receive Date: 20110829
  Receipt Date: 20110418
  Transmission Date: 20111222
  Serious: No
  Sender: FDA-Public Use
  Company Number: US-ASTRAZENECA-2011SE22442

PATIENT
  Sex: Female

DRUGS (1)
  1. VIMOVO [Suspect]
     Route: 048
     Dates: start: 20110412

REACTIONS (6)
  - MUSCULAR WEAKNESS [None]
  - INCORRECT DOSE ADMINISTERED [None]
  - DIZZINESS [None]
  - DYSARTHRIA [None]
  - BEDRIDDEN [None]
  - PAIN [None]
